FAERS Safety Report 4561132-0 (Version None)
Quarter: 2005Q1

REPORT INFORMATION
  Report Type: 
  Country: None (occurrence: None)
  Receive Date: 20050124
  Receipt Date: 20050111
  Transmission Date: 20050727
  Serious: Yes (Other)
  Sender: FDA-Public Use
  Company Number: 2004119575

PATIENT
  Age: 75 Year
  Sex: Male
  Weight: 75 kg

DRUGS (3)
  1. VFEND [Suspect]
     Indication: PULMONARY MYCOSIS
     Dosage: 800 MG (2 IN 1 D), INTRAVENOUS
     Route: 042
     Dates: start: 20041216
  2. CLOPIDOGREL BISULFATE [Concomitant]
  3. HEPARIN-FRACTION, SODIUM SALT (HEPARIN-FRACTION, SODIUM SALT) [Concomitant]

REACTIONS (4)
  - CATHETER RELATED COMPLICATION [None]
  - DEEP VEIN THROMBOSIS [None]
  - LUNG CARCINOMA CELL TYPE UNSPECIFIED RECURRENT [None]
  - THROMBOPHLEBITIS [None]
